FAERS Safety Report 9012908 (Version 3)
Quarter: 2013Q1

REPORT INFORMATION
  Report Type: Report from Study
  Country: US (occurrence: US)
  Receive Date: 20130114
  Receipt Date: 20130306
  Transmission Date: 20140127
  Serious: No
  Sender: FDA-Public Use
  Company Number: US-VERTEX PHARMACEUTICALS INC.-2013-000508

PATIENT
  Age: 22 Year
  Sex: Male
  Weight: 104 kg

DRUGS (5)
  1. VX-950 (TELAPREVIR) [Suspect]
     Indication: HEPATITIS C
     Dosage: 750 MG, TID
     Route: 048
  2. RIBAVIRIN [Suspect]
     Indication: HEPATITIS C
     Dosage: 800MG, 600MG
     Route: 048
  3. RIBAVIRIN [Suspect]
     Dosage: 200MG, 200MG
  4. PEGASYS [Suspect]
     Indication: HEPATITIS C
     Dosage: 180 ?G, UNK
     Route: 058
  5. SUBOXONE [Concomitant]
     Dosage: 2-0.5 MG
     Route: 048

REACTIONS (8)
  - Influenza like illness [Unknown]
  - Injection site rash [Unknown]
  - Injection site erythema [Unknown]
  - Fatigue [Unknown]
  - Rash [Unknown]
  - Rash erythematous [Unknown]
  - Anaemia [Unknown]
  - Nausea [Unknown]
